FAERS Safety Report 8321595-1 (Version None)
Quarter: 2012Q2

REPORT INFORMATION
  Report Type: 
  Country: None (occurrence: None)
  Receive Date: 20120430
  Receipt Date: 20091021
  Transmission Date: 20120825
  Serious: No
  Sender: FDA-Public Use
  Company Number: US-TEVA-2009011748

PATIENT
  Sex: Female
  Weight: 108.05 kg

DRUGS (7)
  1. PLAVIX [Concomitant]
     Dates: start: 20080501
  2. NUVIGIL [Suspect]
     Indication: SLEEP APNOEA SYNDROME
     Dosage: 150 MILLIGRAM;
     Route: 048
     Dates: start: 20091020
  3. AZOR [Concomitant]
     Dates: start: 20091001
  4. VYTORIN [Concomitant]
     Dates: start: 20091001
  5. NOVOLOG [Concomitant]
     Dates: start: 20090801
  6. AVANDAMET [Concomitant]
     Dates: start: 20091001
  7. ASPIRIN [Concomitant]
     Dates: start: 19990101

REACTIONS (1)
  - INSOMNIA [None]
